FAERS Safety Report 14037586 (Version 1)
Quarter: 2017Q4

REPORT INFORMATION
  Report Type: Spontaneous
  Country: US (occurrence: US)
  Receive Date: 20171003
  Receipt Date: 20171003
  Transmission Date: 20180321
  Serious: Yes (Other)
  Sender: FDA-Public Use
  Company Number: None

PATIENT
  Age: 40 Year
  Sex: Female
  Weight: 60 kg

DRUGS (1)
  1. JUST THE REGULAR FLU SHOT FOR 2017/2018 [Suspect]
     Active Substance: INFLUENZA VIRUS VACCINE
     Route: 058

REACTIONS (4)
  - Fatigue [None]
  - Pyrexia [None]
  - Dizziness [None]
  - Headache [None]

NARRATIVE: CASE EVENT DATE: 20170924
